FAERS Safety Report 4968177-7 (Version None)
Quarter: 2006Q2

REPORT INFORMATION
  Report Type: 
  Country: None (occurrence: None)
  Receive Date: 20060410
  Receipt Date: 20060403
  Transmission Date: 20061013
  Serious: Yes (Death, Hospitalization)
  Sender: FDA-Public Use
  Company Number: 2006AC00659

PATIENT
  Age: 62 Year
  Sex: Male

DRUGS (7)
  1. AMITRIPTYLINE HCL [Suspect]
  2. ATENOLOL [Suspect]
  3. WARFARIN [Concomitant]
  4. SIMVASTATIN [Concomitant]
  5. GLYBURIDE [Concomitant]
  6. ASPIRIN [Concomitant]
  7. CALCIUM ACETATE [Concomitant]

REACTIONS (14)
  - APNOEA [None]
  - CARDIAC ARREST [None]
  - DEPRESSION [None]
  - DYSARTHRIA [None]
  - DYSPNOEA [None]
  - ELECTROMECHANICAL DISSOCIATION [None]
  - FALL [None]
  - FATIGUE [None]
  - FEELING DRUNK [None]
  - LOSS OF CONSCIOUSNESS [None]
  - MENTAL STATUS CHANGES [None]
  - OVERDOSE [None]
  - PERICARDIAL EFFUSION [None]
  - PULSE ABSENT [None]
